FAERS Safety Report 17112117 (Version 5)
Quarter: 2020Q1

REPORT INFORMATION
  Report Type: Spontaneous
  Country: US (occurrence: US)
  Receive Date: 20191204
  Receipt Date: 20200313
  Transmission Date: 20200409
  Serious: Yes (Hospitalization)
  Sender: FDA-Public Use
  Company Number: US-SAMSUNG BIOEPIS-SB-2019-36103

PATIENT
  Age: 33 Year
  Sex: Female
  Weight: 57.6 kg

DRUGS (7)
  1. RENFLEXIS [Suspect]
     Active Substance: INFLIXIMAB-ABDA
     Indication: COLITIS ULCERATIVE
  2. ITRACONAZOLE. [Suspect]
     Active Substance: ITRACONAZOLE
     Indication: PRODUCT USED FOR UNKNOWN INDICATION
     Dosage: UNKNOWN
     Route: 065
  3. BETAMETHASONE DIPROPIONATE. [Suspect]
     Active Substance: BETAMETHASONE DIPROPIONATE
     Indication: PRODUCT USED FOR UNKNOWN INDICATION
     Dosage: UNKNOWN
     Route: 065
  4. RENFLEXIS [Suspect]
     Active Substance: INFLIXIMAB-ABDA
     Indication: CROHN^S DISEASE
  5. FLU VACCINE [Concomitant]
     Active Substance: INFLUENZA VIRUS VACCINE
     Indication: PRODUCT USED FOR UNKNOWN INDICATION
     Dosage: UNKNOWN
     Route: 065
  6. RENFLEXIS [Suspect]
     Active Substance: INFLIXIMAB-ABDA
     Indication: COLITIS
     Route: 042
     Dates: start: 201807, end: 201910
  7. DIPROLENE [Suspect]
     Active Substance: BETAMETHASONE DIPROPIONATE
     Indication: PRODUCT USED FOR UNKNOWN INDICATION
     Dosage: UNKNOWN
     Route: 065

REACTIONS (20)
  - Rhinovirus infection [Unknown]
  - Splenic abscess [Unknown]
  - Inflammatory bowel disease [Unknown]
  - Enterovirus test positive [Unknown]
  - Exposure via breast milk [Unknown]
  - Thrombocytopenia [Unknown]
  - Immunosuppression [Unknown]
  - Anaemia [Unknown]
  - Nasopharyngitis [Unknown]
  - Premature baby [Unknown]
  - Off label use [Unknown]
  - Foetal exposure during pregnancy [Unknown]
  - HELLP syndrome [Unknown]
  - Hepatosplenomegaly [Unknown]
  - Tachycardia [Unknown]
  - Histoplasmosis disseminated [Unknown]
  - Maternal exposure during pregnancy [Unknown]
  - Liver function test increased [Unknown]
  - Appendicitis [Unknown]
  - Rash [Unknown]

NARRATIVE: CASE EVENT DATE: 20191002
